FAERS Safety Report 10025649 (Version 1)
Quarter: 2014Q1

REPORT INFORMATION
  Report Type: Spontaneous
  Country: US (occurrence: US)
  Receive Date: 20140320
  Receipt Date: 20140320
  Transmission Date: 20141002
  Serious: Yes (Other)
  Sender: FDA-Public Use
  Company Number: US-ASTRAZENECA-2014SE18330

PATIENT
  Sex: Male

DRUGS (2)
  1. SEROQUEL [Suspect]
     Indication: DELUSION
     Route: 048
  2. SINEMET [Concomitant]

REACTIONS (7)
  - Dementia with Lewy bodies [Unknown]
  - Parkinson^s disease [Unknown]
  - Malaise [Unknown]
  - Aggression [Unknown]
  - Agitation [Unknown]
  - Circumstance or information capable of leading to medication error [Unknown]
  - Off label use [Unknown]
